FAERS Safety Report 5287891-X (Version None)
Quarter: 2007Q2

REPORT INFORMATION
  Report Type: 
  Country: None (occurrence: None)
  Receive Date: 20070405
  Receipt Date: 20070327
  Transmission Date: 20071010
  Serious: Yes (Life-Threatening, Hospitalization)
  Sender: FDA-Public Use
  Company Number: FR-JNJFOC-20070202838

PATIENT
  Sex: Female

DRUGS (9)
  1. RISPERDAL CONSTA [Suspect]
     Route: 030
  2. RISPERDAL CONSTA [Suspect]
     Indication: PERSECUTORY DELUSION
     Route: 030
  3. TEMESTA [Concomitant]
  4. TEMESTA [Concomitant]
  5. TEMESTA [Concomitant]
  6. STILNOX [Concomitant]
  7. TERCIAN [Concomitant]
  8. CYAMEMAZINE [Concomitant]
  9. CYAMEMAZINE [Concomitant]

REACTIONS (9)
  - CONFUSIONAL STATE [None]
  - DEHYDRATION [None]
  - ESCHAR [None]
  - HYPOKINESIA [None]
  - LOSS OF CONSCIOUSNESS [None]
  - LUNG INFECTION [None]
  - PYREXIA [None]
  - RENAL FAILURE ACUTE [None]
  - RHABDOMYOLYSIS [None]
